FAERS Safety Report 13689732 (Version 1)
Quarter: 2017Q2

REPORT INFORMATION
  Report Type: Spontaneous
  Country: FR (occurrence: FR)
  Receive Date: 20170626
  Receipt Date: 20170626
  Transmission Date: 20170830
  Serious: Yes (Hospitalization, Other)
  Sender: FDA-Public Use
  Company Number: FR-MYLANLABS-2017M1037230

PATIENT

DRUGS (3)
  1. PIPERACILLIN AND TAZOBACTAM [Suspect]
     Active Substance: PIPERACILLIN SODIUM\TAZOBACTAM SODIUM
     Indication: FEBRILE NEUTROPENIA
     Dosage: 4 G, TID
     Route: 042
     Dates: start: 20161125, end: 20161125
  2. PIPERACILLIN AND TAZOBACTAM [Suspect]
     Active Substance: PIPERACILLIN SODIUM\TAZOBACTAM SODIUM
     Dosage: 2 G, UNK
     Route: 048
  3. PIPERACILLIN AND TAZOBACTAM [Suspect]
     Active Substance: PIPERACILLIN SODIUM\TAZOBACTAM SODIUM
     Indication: SEPSIS
     Dosage: 1.2 G, UNK
     Route: 048
     Dates: start: 20170110

REACTIONS (4)
  - Face oedema [Recovered/Resolved]
  - Dysphonia [Recovered/Resolved]
  - Tongue oedema [Recovered/Resolved]
  - Laryngeal dyspnoea [Recovered/Resolved]

NARRATIVE: CASE EVENT DATE: 20161125
